FAERS Safety Report 14016411 (Version 1)
Quarter: 2017Q3

REPORT INFORMATION
  Report Type: Spontaneous
  Country: US (occurrence: US)
  Receive Date: 20170927
  Receipt Date: 20170927
  Transmission Date: 20171128
  Serious: No
  Sender: FDA-Public Use
  Company Number: US-SA-2017SA074347

PATIENT
  Sex: Male

DRUGS (1)
  1. LEMTRADA [Suspect]
     Active Substance: ALEMTUZUMAB
     Route: 041

REACTIONS (10)
  - Headache [Unknown]
  - Eye irritation [Unknown]
  - Pyrexia [Unknown]
  - Conjunctivitis [Unknown]
  - Eye swelling [Unknown]
  - Ocular hyperaemia [Unknown]
  - Chills [Unknown]
  - Dyspnoea [Unknown]
  - Asthma [Unknown]
  - Eye discharge [Unknown]

NARRATIVE: CASE EVENT DATE: 20170521
